FAERS Safety Report 18735489 (Version 2)
Quarter: 2021Q1

REPORT INFORMATION
  Report Type: Spontaneous
  Country: US (occurrence: US)
  Receive Date: 20210113
  Receipt Date: 20210208
  Transmission Date: 20210419
  Serious: Yes (Death)
  Sender: FDA-Public Use
  Company Number: US-PFIZER INC-2021011353

PATIENT
  Age: 46 Year
  Sex: Female
  Weight: 79.37 kg

DRUGS (2)
  1. BRAFTOVI [Suspect]
     Active Substance: ENCORAFENIB
     Indication: HEPATIC CANCER
     Dosage: 4 DF, 1X/DAY  (4 CAP. ONCE A DAY)
     Route: 048
     Dates: start: 202006
  2. BRAFTOVI [Suspect]
     Active Substance: ENCORAFENIB
     Indication: COLON CANCER

REACTIONS (1)
  - Neoplasm progression [Fatal]
